FAERS Safety Report 22261789 (Version 1)
Quarter: 2023Q2

REPORT INFORMATION
  Report Type: Report from Study
  Country: US (occurrence: US)
  Receive Date: 20230428
  Receipt Date: 20230428
  Transmission Date: 20230721
  Serious: Yes (Other)
  Sender: FDA-Public Use
  Company Number: US-ABBVIE-4744386

PATIENT
  Age: 61 Year
  Sex: Male
  Weight: 97 kg

DRUGS (10)
  1. IMBRUVICA [Suspect]
     Active Substance: IBRUTINIB
     Indication: Chronic lymphocytic leukaemia
     Dosage: TIME INTERVAL: 0.33333333 DAYS
     Route: 048
     Dates: start: 20171001
  2. HUMALOG [Concomitant]
     Active Substance: INSULIN LISPRO
     Indication: Type 1 diabetes mellitus
  3. LANTUS [Concomitant]
     Active Substance: INSULIN GLARGINE
     Indication: Type 1 diabetes mellitus
  4. LOSARTAN [Concomitant]
     Active Substance: LOSARTAN
     Indication: Renal disorder prophylaxis
  5. ACYCLOVIR [Concomitant]
     Active Substance: ACYCLOVIR
     Indication: Herpes zoster
  6. VENCLEXTA [Suspect]
     Active Substance: VENETOCLAX
     Indication: Lymphocyte count increased
     Route: 048
     Dates: start: 20230325, end: 20230401
  7. VENCLEXTA [Suspect]
     Active Substance: VENETOCLAX
     Indication: Lymphocyte count increased
     Route: 048
     Dates: start: 20230402, end: 20230409
  8. VENCLEXTA [Suspect]
     Active Substance: VENETOCLAX
     Indication: Lymphocyte count increased
     Route: 048
     Dates: start: 20230410, end: 20230417
  9. VENCLEXTA [Suspect]
     Active Substance: VENETOCLAX
     Indication: Lymphocyte count increased
     Dosage: LAST ADMIN DATE: 25 APR 2023
     Route: 048
     Dates: start: 20230418
  10. VENCLEXTA [Suspect]
     Active Substance: VENETOCLAX
     Indication: Lymphocyte count increased
     Dosage: FIRST ADMIN DATE: 25 APR 2023
     Route: 048

REACTIONS (2)
  - Lymphocyte count increased [Recovering/Resolving]
  - Gene mutation [Unknown]

NARRATIVE: CASE EVENT DATE: 20221229
